FAERS Safety Report 4840428-9 (Version None)
Quarter: 2005Q4

REPORT INFORMATION
  Report Type: 
  Country: None (occurrence: None)
  Receive Date: 20051101
  Receipt Date: 20050831
  Transmission Date: 20060501
  Serious: No
  Sender: FDA-Public Use
  Company Number: MK200509-0050-1

PATIENT
  Age: 11 Year
  Sex: Female

DRUGS (1)
  1. NEUTROSPEC [Suspect]
     Indication: APPENDICITIS
     Dosage: ONE TIME, IV
     Route: 042

REACTIONS (1)
  - DYSPNOEA [None]
